FAERS Safety Report 5061969-8 (Version None)
Quarter: 2006Q3

REPORT INFORMATION
  Report Type: 
  Country: None (occurrence: None)
  Receive Date: 20060721
  Receipt Date: 20060711
  Transmission Date: 20061208
  Serious: Yes (Other)
  Sender: FDA-Public Use
  Company Number: HQWYE894613JUL06

PATIENT
  Sex: Female

DRUGS (3)
  1. PREMPRO [Suspect]
  2. PREMARIN [Suspect]
     Dosage: 420 MOS. (35 YEARS)
     Dates: start: 19630101, end: 19980801
  3. PROVERA [Suspect]

REACTIONS (1)
  - BREAST CANCER [None]
